FAERS Safety Report 14076311 (Version 2)
Quarter: 2017Q4

REPORT INFORMATION
  Report Type: Report from Study
  Country: US (occurrence: US)
  Receive Date: 20171011
  Receipt Date: 20171028
  Transmission Date: 20180321
  Serious: Yes (Other)
  Sender: FDA-Public Use
  Company Number: PHEH2017US032004

PATIENT
  Sex: Female

DRUGS (4)
  1. COSENTYX [Suspect]
     Active Substance: SECUKINUMAB
     Indication: PSORIASIS
  2. DIOVAN [Concomitant]
     Active Substance: VALSARTAN
     Indication: BLOOD PRESSURE MEASUREMENT
     Route: 065
  3. COSENTYX [Suspect]
     Active Substance: SECUKINUMAB
     Indication: PSORIATIC ARTHROPATHY
     Dosage: 300 MG, QMO
     Route: 058
  4. TOPAMAX [Concomitant]
     Active Substance: TOPIRAMATE
     Route: 065

REACTIONS (5)
  - Psoriatic arthropathy [Unknown]
  - Confusional state [Unknown]
  - Memory impairment [Unknown]
  - Rheumatoid arthritis [Unknown]
  - Product storage error [Unknown]
